FAERS Safety Report 4550619-2 (Version None)
Quarter: 2004Q4

REPORT INFORMATION
  Report Type: 
  Country: None (occurrence: None)
  Receive Date: 20041227
  Receipt Date: 20040907
  Transmission Date: 20050328
  Serious: No
  Sender: FDA-Public Use
  Company Number: 04P-163-0272573-00

PATIENT
  Age: 82 Year
  Sex: Male
  Weight: 87.0906 kg

DRUGS (10)
  1. HUMIRA [Suspect]
     Indication: RHEUMATOID ARTHRITIS
     Dosage: 40 MG, 1 IN 2 WK, SUBCUTANEOUS
     Route: 058
     Dates: start: 20040903, end: 20040903
  2. GLIPIZIDE [Concomitant]
  3. LATANOPROST [Concomitant]
  4. NITROGLYCERIN [Concomitant]
  5. SPIRONOLACTONE [Concomitant]
  6. ULTRACET [Concomitant]
  7. DIGOXIN [Concomitant]
  8. ALLOPURINOL [Concomitant]
  9. POTASSIUM CHLORIDE [Concomitant]
  10. FUROSEMIDE [Concomitant]

REACTIONS (5)
  - ARTHRALGIA [None]
  - CHEST PAIN [None]
  - DIFFICULTY IN WALKING [None]
  - DYSPNOEA [None]
  - MUSCULOSKELETAL STIFFNESS [None]
